FAERS Safety Report 8282844-1 (Version None)
Quarter: 2012Q2

REPORT INFORMATION
  Report Type: 
  Country: None (occurrence: None)
  Receive Date: 20120413
  Receipt Date: 20120403
  Transmission Date: 20120825
  Serious: Yes (Death)
  Sender: FDA-Public Use
  Company Number: JP-ACTELION-A-CH2012-63724

PATIENT
  Sex: Female

DRUGS (7)
  1. ALLOPURINOL [Concomitant]
  2. ASPIRIN [Concomitant]
  3. PRAVASTATIN SODIUM [Concomitant]
  4. TRACLEER [Suspect]
     Indication: PULMONARY ARTERIAL HYPERTENSION
     Dosage: 62.5 MG, TID
     Route: 048
     Dates: start: 20111201
  5. TRACLEER [Suspect]
     Dosage: 62.5 MG, BID
     Route: 048
     Dates: start: 20110714, end: 20111130
  6. OXYGEN [Concomitant]
  7. WARFARIN SODIUM [Concomitant]

REACTIONS (1)
  - DEATH [None]
